FAERS Safety Report 9287616 (Version 2)
Quarter: 2013Q3

REPORT INFORMATION
  Report Type: Spontaneous
  Country: FR (occurrence: FR)
  Receive Date: 20130514
  Receipt Date: 20130918
  Transmission Date: 20140515
  Serious: Yes (Hospitalization)
  Sender: FDA-Public Use
  Company Number: FR-AMGEN-FRASP2013033276

PATIENT
  Age: 31 Year
  Sex: Male

DRUGS (5)
  1. ENBREL [Suspect]
     Indication: PRODUCT USED FOR UNKNOWN INDICATION
     Dosage: UNK
     Route: 058
     Dates: start: 20090917, end: 20111123
  2. REMICADE [Suspect]
     Indication: PRODUCT USED FOR UNKNOWN INDICATION
     Dosage: UNK
     Route: 042
     Dates: start: 20080915, end: 20081215
  3. CIMZIA [Suspect]
     Indication: PRODUCT USED FOR UNKNOWN INDICATION
     Dosage: 200 MG EVERY 15 DAYS
     Route: 058
     Dates: start: 20120124, end: 20120501
  4. SIMPONI [Suspect]
     Indication: PRODUCT USED FOR UNKNOWN INDICATION
     Dosage: UNK
     Route: 058
     Dates: start: 20120913, end: 20121113
  5. SEVREDOL [Concomitant]
     Dosage: 10 MG, EVERY 4 HRS
     Route: 048

REACTIONS (2)
  - Hepatocellular injury [Recovered/Resolved]
  - Hepatic steatosis [Not Recovered/Not Resolved]
